FAERS Safety Report 17758276 (Version 2)
Quarter: 2020Q2

REPORT INFORMATION
  Report Type: Report from Study
  Country: IN (occurrence: IN)
  Receive Date: 20200507
  Receipt Date: 20200512
  Transmission Date: 20200714
  Serious: Yes (Other)
  Sender: FDA-Public Use
  Company Number: NVSC2020IN124173

PATIENT
  Age: 40 Year
  Sex: Male
  Weight: 98 kg

DRUGS (1)
  1. GALVUS MET [Suspect]
     Active Substance: METFORMIN HYDROCHLORIDE\VILDAGLIPTIN
     Indication: DIABETES MELLITUS
     Dosage: 1 DF, BID (1-0-1) (STARTED 1.5 YEARS BACK) (METFORMIN 500 MG, VILDAGLIPTIN 50 MG)
     Route: 048

REACTIONS (3)
  - Body mass index abnormal [Unknown]
  - Hyperglycaemia [Unknown]
  - Weight abnormal [Unknown]

NARRATIVE: CASE EVENT DATE: 20200501
